FAERS Safety Report 10155678 (Version 1)
Quarter: 2014Q2

REPORT INFORMATION
  Report Type: Spontaneous
  Country: US (occurrence: US)
  Receive Date: 20140506
  Receipt Date: 20140506
  Transmission Date: 20141212
  Serious: No
  Sender: FDA-Public Use
  Company Number: US-009507513-1404USA015446

PATIENT
  Age: 55 Year
  Sex: Male

DRUGS (4)
  1. NOXAFIL [Suspect]
     Indication: ASPERGILLUS INFECTION
     Dosage: 300 MG, UNK
     Route: 048
     Dates: start: 20140318, end: 2014
  2. NOXAFIL [Suspect]
     Indication: ASPERGILLUS INFECTION
     Dosage: 300 MG, QD
     Route: 048
     Dates: start: 20140301, end: 201403
  3. NOXAFIL [Suspect]
     Dosage: UNK
     Route: 048
     Dates: start: 2014
  4. AMBISOME [Concomitant]

REACTIONS (2)
  - Drug level decreased [Unknown]
  - Incorrect drug dosage form administered [Unknown]
